FAERS Safety Report 7977519-X (Version None)
Quarter: 2011Q4

REPORT INFORMATION
  Report Type: 
  Country: None (occurrence: None)
  Receive Date: 20111214
  Receipt Date: 20111121
  Transmission Date: 20120403
  Serious: No
  Sender: FDA-Public Use
  Company Number: US-AMGEN-USASP2011061480

PATIENT
  Age: 49 Year
  Sex: Female

DRUGS (2)
  1. TREXALL [Concomitant]
     Dosage: 1 MG, UNK
     Dates: start: 20100101
  2. ENBREL [Suspect]
     Indication: RHEUMATOID ARTHRITIS
     Dosage: 50 MG WEEKLY
     Dates: start: 20110410

REACTIONS (8)
  - HYPERTENSION [None]
  - INJECTION SITE EXTRAVASATION [None]
  - DYSPNOEA [None]
  - DYSPEPSIA [None]
  - CHEST PAIN [None]
  - DRY SKIN [None]
  - SKIN CHAPPED [None]
  - INJECTION SITE HAEMORRHAGE [None]
